FAERS Safety Report 7760194-7 (Version None)
Quarter: 2011Q3

REPORT INFORMATION
  Report Type: 
  Country: None (occurrence: None)
  Receive Date: 20110919
  Receipt Date: 20110913
  Transmission Date: 20111222
  Serious: Yes (Hospitalization)
  Sender: FDA-Public Use
  Company Number: US-GLAXOSMITHKLINE-A0836257A

PATIENT
  Age: 60 Year
  Sex: Female

DRUGS (1)
  1. AVANDIA [Suspect]
     Indication: DIABETES MELLITUS
     Dosage: 8MG PER DAY
     Route: 048
     Dates: start: 20050429, end: 20071101

REACTIONS (5)
  - PAIN [None]
  - ANXIETY [None]
  - DYSLIPIDAEMIA [None]
  - HYPERTENSION [None]
  - CORONARY ARTERY DISEASE [None]
